FAERS Safety Report 10687533 (Version 1)
Quarter: 2014Q4

REPORT INFORMATION
  Report Type: Spontaneous
  Country: US (occurrence: None)
  Receive Date: 20141231
  Receipt Date: 20141231
  Transmission Date: 20150529
  Serious: Yes (Hospitalization)
  Sender: FDA-Public Use
  Company Number: None

PATIENT
  Age: 71 Year
  Sex: Male
  Weight: 112.9 kg

DRUGS (2)
  1. BENDAMUSTINE HYDROCHLORIDE [Suspect]
     Active Substance: BENDAMUSTINE HYDROCHLORIDE
     Dates: end: 20131216
  2. RITUXIMAB [Suspect]
     Active Substance: RITUXIMAB
     Dosage: DOSE INCREASED
     Dates: end: 20141216

REACTIONS (5)
  - Blood creatinine increased [None]
  - Hypotension [None]
  - Asthenia [None]
  - White blood cell count increased [None]
  - Blood urea increased [None]

NARRATIVE: CASE EVENT DATE: 20141217
